FAERS Safety Report 7345605-3 (Version None)
Quarter: 2011Q1

REPORT INFORMATION
  Report Type: 
  Country: None (occurrence: None)
  Receive Date: 20110310
  Receipt Date: 20110301
  Transmission Date: 20110831
  Serious: Yes (Hospitalization)
  Sender: FDA-Public Use
  Company Number: A0897757A

PATIENT
  Age: 61 Year
  Sex: Male
  Weight: 87.7 kg

DRUGS (5)
  1. AVANDAMET [Suspect]
     Route: 048
     Dates: start: 20040827, end: 20051211
  2. GLIPIZIDE [Concomitant]
  3. LESCOL [Concomitant]
  4. AVANDIA [Suspect]
     Indication: DIABETES MELLITUS
     Dosage: 8MG PER DAY
     Route: 048
     Dates: start: 20040514
  5. GLUCOTROL [Concomitant]

REACTIONS (4)
  - HEART INJURY [None]
  - ATRIOVENTRICULAR BLOCK COMPLETE [None]
  - BUNDLE BRANCH BLOCK RIGHT [None]
  - CARDIAC PACEMAKER INSERTION [None]
